FAERS Safety Report 11009357 (Version 1)
Quarter: 2015Q2

REPORT INFORMATION
  Report Type: Spontaneous
  Country: US (occurrence: None)
  Receive Date: 20150409
  Receipt Date: 20150409
  Transmission Date: 20150821
  Serious: Yes (Other)
  Sender: FDA-Public Use
  Company Number: None

PATIENT
  Age: 72 Year
  Sex: Male
  Weight: 81.19 kg

DRUGS (1)
  1. XTANDI [Suspect]
     Active Substance: ENZALUTAMIDE
     Indication: PROSTATE CANCER
     Dosage: STRENGTH:  40MG, DOSE FORM:  ORAL, FREQUENCY:  4 PO DAILY, ROUTE:  ORAL 047?
     Route: 048
     Dates: start: 20141115, end: 20150322

REACTIONS (5)
  - Therapy cessation [None]
  - Decreased appetite [None]
  - Hypersomnia [None]
  - Malaise [None]
  - Abdominal distension [None]

NARRATIVE: CASE EVENT DATE: 20150322
